FAERS Safety Report 23248109 (Version 1)
Quarter: 2023Q4

REPORT INFORMATION
  Report Type: Spontaneous
  Country: JP (occurrence: JP)
  Receive Date: 20231130
  Receipt Date: 20231130
  Transmission Date: 20240110
  Serious: Yes (Hospitalization, Other)
  Sender: FDA-Public Use
  Company Number: JP-SA-2023SA370665

PATIENT
  Age: 51 Year
  Sex: Male

DRUGS (4)
  1. OXALIPLATIN [Suspect]
     Active Substance: OXALIPLATIN
     Indication: Pancreatic carcinoma
     Dosage: UNK
  2. FLUOROURACIL [Suspect]
     Active Substance: FLUOROURACIL
     Indication: Pancreatic carcinoma
     Dosage: UNK
  3. IRINOTECAN HYDROCHLORIDE [IRINOTECAN HYDROCHLORIDE TRIHYDRATE] [Concomitant]
     Dosage: UNK
  4. LEVOLEUCOVORIN CALCIUM [Concomitant]
     Active Substance: LEVOLEUCOVORIN CALCIUM
     Dosage: UNK

REACTIONS (3)
  - Angina pectoris [Recovered/Resolved]
  - Ascites [Recovered/Resolved]
  - Device dislocation [Recovered/Resolved]
